FAERS Safety Report 17736504 (Version 1)
Quarter: 2020Q2

REPORT INFORMATION
  Report Type: Spontaneous
  Country: US (occurrence: US)
  Receive Date: 20200501
  Receipt Date: 20200501
  Transmission Date: 20200714
  Serious: No
  Sender: FDA-Public Use
  Company Number: US-ANIPHARMA-2019-US-014575

PATIENT
  Sex: Female
  Weight: 84.37 kg

DRUGS (8)
  1. LEVOTHRYOXINE [Concomitant]
     Active Substance: LEVOTHYROXINE
     Dosage: 0.025 MG, ONE BY MONTH EVERY DAY
  2. ALBUTEROL. [Suspect]
     Active Substance: ALBUTEROL
     Dosage: UNK
     Route: 065
  3. SYMBICORT [Suspect]
     Active Substance: BUDESONIDE\FORMOTEROL FUMARATE DIHYDRATE
     Dosage: EVERY MORNING AND EVERY NIGHT
     Route: 065
  4. PROPRANOLOL EXTENDED RELEASE CAPSULES (NON-SPECIFIC) [Suspect]
     Active Substance: PROPRANOLOL HYDROCHLORIDE
     Indication: CARDIAC DISORDER
     Dosage: 60 MG CAPSULE ONCE BY MOUTH, EVERYDAY
     Route: 065
  5. DULOXETINE DR [Concomitant]
     Active Substance: DULOXETINE
     Dosage: 30 MG ONE CAPSULE BY MOUTH TWICE DAILY
     Route: 065
  6. ANXIETY [Concomitant]
     Dosage: 1 MG TABLET ONE BY MOUTH EVERY 8 HOURS AS NEEDEDANXIETYANXIETYANXIETYANXIETY
  7. MECLIZINE [Concomitant]
     Active Substance: MECLIZINE HYDROCHLORIDE
     Dosage: 25 MG I TAKE HALF OF IT IN MORNING AND A WHOLE ONE NIGHT.^
  8. LYRICA [Suspect]
     Active Substance: PREGABALIN
     Dosage: 75 MG THREE TIMES DAILY
     Route: 065

REACTIONS (2)
  - Migraine [Unknown]
  - Blood pressure increased [Unknown]
